FAERS Safety Report 7734886-X (Version None)
Quarter: 2011Q3

REPORT INFORMATION
  Report Type: 
  Country: None (occurrence: None)
  Receive Date: 20110907
  Receipt Date: 20110824
  Transmission Date: 20111222
  Serious: Yes (Other)
  Sender: FDA-Public Use
  Company Number: PHHY2011JP75257

PATIENT
  Age: 61 Year
  Sex: Male

DRUGS (7)
  1. LIVALO [Concomitant]
     Dosage: 2 MG, UNK
     Route: 048
  2. EXFORGE [Suspect]
     Indication: HYPERTENSION
     Dosage: 10 DF, UNK
     Route: 048
     Dates: start: 20110821, end: 20110821
  3. VOGLIBOSE [Concomitant]
     Dosage: 0.3 MG, UNK
     Route: 048
  4. ASPIRIN [Concomitant]
     Dosage: 100 MG, UNK
     Route: 048
  5. AMOXAPINE [Concomitant]
     Route: 048
  6. EXFORGE [Suspect]
     Route: 048
     Dates: start: 20110824
  7. INSULIN [Concomitant]

REACTIONS (4)
  - BLOOD PRESSURE DECREASED [None]
  - DEPRESSION [None]
  - CONFUSIONAL STATE [None]
  - OVERDOSE [None]
